FAERS Safety Report 23176188 (Version 3)
Quarter: 2024Q2

REPORT INFORMATION
  Report Type: Report from Study
  Country: CA (occurrence: CA)
  Receive Date: 20231113
  Receipt Date: 20240502
  Transmission Date: 20240716
  Serious: Yes (Hospitalization)
  Sender: FDA-Public Use
  Company Number: CA-JNJFOC-20231127736

PATIENT
  Age: 66 Year
  Sex: Male
  Weight: 68 kg

DRUGS (2)
  1. STELARA [Suspect]
     Active Substance: USTEKINUMAB
     Indication: Crohn^s disease
     Dosage: THERAPY START DATE ALSO REPORTED 27-JUL-2023
     Route: 058
     Dates: start: 20230718
  2. STELARA [Suspect]
     Active Substance: USTEKINUMAB

REACTIONS (1)
  - Abdominal abscess [Not Recovered/Not Resolved]

NARRATIVE: CASE EVENT DATE: 20230101
